FAERS Safety Report 5719497-X (Version None)
Quarter: 2008Q2

REPORT INFORMATION
  Report Type: 
  Country: None (occurrence: None)
  Receive Date: 20080428
  Receipt Date: 20080417
  Transmission Date: 20081010
  Serious: Yes (Other)
  Sender: FDA-Public Use
  Company Number: US-ROCHE-543453

PATIENT
  Sex: Male
  Weight: 102.1 kg

DRUGS (4)
  1. CELLCEPT [Suspect]
     Indication: DRUG USE FOR UNKNOWN INDICATION
     Route: 065
     Dates: start: 20060101
  2. LISINOPRIL [Concomitant]
  3. PRILOSEC [Concomitant]
  4. ZOCOR [Concomitant]
     Dosage: TAKEN AT BEDTIME.

REACTIONS (3)
  - ABORTION SPONTANEOUS [None]
  - PREGNANCY [None]
  - TRANSMISSION OF DRUG VIA SEMEN [None]
